FAERS Safety Report 4676494-3 (Version None)
Quarter: 2005Q2

REPORT INFORMATION
  Report Type: 
  Country: None (occurrence: None)
  Receive Date: 20050527
  Receipt Date: 20050513
  Transmission Date: 20051028
  Serious: Yes (Life-Threatening, Hospitalization)
  Sender: FDA-Public Use
  Company Number: FR-JNJFOC-20050503497

PATIENT
  Age: 75 Year
  Sex: Male
  Weight: 72 kg

DRUGS (8)
  1. RISPERDAL [Suspect]
     Indication: DELUSION
     Route: 049
  2. RISPERDAL [Suspect]
     Route: 049
  3. ZOCOR [Concomitant]
  4. PRAXILENE [Concomitant]
  5. SERESTA [Concomitant]
  6. TRIATEC [Concomitant]
  7. FLUDEX [Concomitant]
  8. INSULINE NOVOMIX [Concomitant]
     Dosage: DOSE: 46 IU/DAY

REACTIONS (2)
  - CARDIO-RESPIRATORY ARREST [None]
  - ELECTROCARDIOGRAM QT CORRECTED INTERVAL PROLONGED [None]
